FAERS Safety Report 21082687 (Version 1)
Quarter: 2022Q3

REPORT INFORMATION
  Report Type: Report from Study
  Country: TW (occurrence: TW)
  Receive Date: 20220714
  Receipt Date: 20220714
  Transmission Date: 20221027
  Serious: Yes (Hospitalization)
  Sender: FDA-Public Use
  Company Number: TW-BAYER-2022A094174

PATIENT
  Age: 65 Year
  Sex: Male

DRUGS (5)
  1. XOFIGO [Suspect]
     Active Substance: RADIUM RA-223 DICHLORIDE
     Indication: Hormone-refractory prostate cancer
     Dosage: 4895 KBQ, ONCE,SLOW INTRAVENOUS INJECTION OVER 1 MINUTE
     Route: 042
     Dates: start: 20210519, end: 20210519
  2. XOFIGO [Suspect]
     Active Substance: RADIUM RA-223 DICHLORIDE
     Indication: Metastases to bone
     Dosage: 4895 KBQ, ONCE,SLOW INTRAVENOUS INJECTION OVER 1 MINUTE
     Route: 042
     Dates: start: 20210623, end: 20210623
  3. XOFIGO [Suspect]
     Active Substance: RADIUM RA-223 DICHLORIDE
     Indication: Hormone-refractory prostate cancer
     Dosage: 4840 KBQ, ONCE,SLOW INTRAVENOUS INJECTION OVER 1 MINUTE
     Route: 042
     Dates: start: 20210721, end: 20210721
  4. XOFIGO [Suspect]
     Active Substance: RADIUM RA-223 DICHLORIDE
     Indication: Hormone-refractory prostate cancer
     Dosage: UNK KBQ, ONCE,SLOW INTRAVENOUS INJECTION OVER 1 MINUTE
     Route: 042
     Dates: start: 20210825, end: 20210825
  5. XOFIGO [Suspect]
     Active Substance: RADIUM RA-223 DICHLORIDE
     Indication: Hormone-refractory prostate cancer
     Dosage: 4675 KBQ, ONCE,SLOW INTRAVENOUS INJECTION OVER 1 MINUTE
     Route: 042
     Dates: start: 20210929, end: 20210929

REACTIONS (5)
  - Anaemia [Recovered/Resolved]
  - Pyrexia [Recovered/Resolved]
  - Nausea [Recovered/Resolved]
  - Vomiting [Recovered/Resolved]
  - Thrombocytopenia [Recovered/Resolved]

NARRATIVE: CASE EVENT DATE: 20211002
